FAERS Safety Report 5028285-1 (Version None)
Quarter: 2006Q2

REPORT INFORMATION
  Report Type: 
  Country: None (occurrence: None)
  Receive Date: 20060503
  Receipt Date: 20060124
  Transmission Date: 20061013
  Serious: No
  Sender: FDA-Public Use
  Company Number: FACT0600038

PATIENT
  Age: 66 Year
  Sex: Female
  Weight: 90.7 kg

DRUGS (6)
  1. FACTIVE [Suspect]
     Indication: RESPIRATORY TRACT INFECTION BACTERIAL
     Dosage: 320 MG, QD, ORAL
     Route: 048
     Dates: start: 20060119, end: 20060123
  2. LASIX [Concomitant]
  3. GLUCOPHAGE [Concomitant]
  4. COZAAR [Concomitant]
  5. SINGULAIR [Concomitant]
  6. HORMONES AND RELATED AGENTS [Concomitant]

REACTIONS (1)
  - DYSPEPSIA [None]
